FAERS Safety Report 16239948 (Version 7)
Quarter: 2019Q2

REPORT INFORMATION
  Report Type: Spontaneous
  Country: JP (occurrence: JP)
  Receive Date: 20190425
  Receipt Date: 20190628
  Transmission Date: 20190711
  Serious: Yes (Death, Other)
  Sender: FDA-Public Use
  Company Number: JP-AMGEN-JPNSP2019059591

PATIENT
  Age: 85 Year
  Sex: Male

DRUGS (7)
  1. ONEALFA [Concomitant]
     Active Substance: ALFACALCIDOL
     Dosage: 0.5 MICROGRAM
     Dates: end: 2019
  2. CALONAL [Concomitant]
     Active Substance: ACETAMINOPHEN
     Dosage: UNK
     Dates: start: 20190416
  3. FERROMIA [Concomitant]
     Active Substance: SODIUM FERROUS CITRATE
     Dosage: UNK
     Dates: end: 2019
  4. EVENITY [Suspect]
     Active Substance: ROMOSOZUMAB-AQQG
     Indication: FEMUR FRACTURE
     Dosage: 210 MILLIGRAM
     Route: 058
     Dates: start: 20190311
  5. REBAMIPIDE [Concomitant]
     Active Substance: REBAMIPIDE
     Dosage: UNK
     Dates: end: 2019
  6. AMLODIPINE SANDOZ [AMLODIPINE BESILATE] [Concomitant]
     Dosage: 2.5 MILLIGRAM
     Dates: end: 2019
  7. CELECOX [Suspect]
     Active Substance: CELECOXIB
     Indication: PRODUCT USED FOR UNKNOWN INDICATION
     Dosage: 200 MILLIGRAM, QD
     Route: 065
     Dates: end: 2019

REACTIONS (6)
  - Pneumonia [Fatal]
  - Sepsis [Fatal]
  - Fall [Unknown]
  - Femoral neck fracture [Unknown]
  - Off label use [Unknown]
  - Postoperative delirium [Unknown]

NARRATIVE: CASE EVENT DATE: 20190311
